FAERS Safety Report 7611922-2 (Version None)
Quarter: 2011Q3

REPORT INFORMATION
  Report Type: 
  Country: None (occurrence: None)
  Receive Date: 20110715
  Receipt Date: 20110705
  Transmission Date: 20111222
  Serious: Yes (Other)
  Sender: FDA-Public Use
  Company Number: US-UCBSA-023409

PATIENT
  Sex: Female
  Weight: 47 kg

DRUGS (6)
  1. KLONOPIN [Concomitant]
  2. OXCARBAZEPINE [Concomitant]
  3. TRILEPTAL [Concomitant]
     Dosage: 300 MG 1/2 UNITS TWICE DAILY
     Route: 048
     Dates: start: 20101208
  4. VIMPAT [Suspect]
     Route: 048
  5. VIMPAT [Suspect]
     Indication: COMPLEX PARTIAL SEIZURES
     Route: 048
     Dates: start: 20090728
  6. TRILEPTAL [Concomitant]
     Indication: COMPLEX PARTIAL SEIZURES
     Route: 048
     Dates: start: 20090106, end: 20091207

REACTIONS (2)
  - WEIGHT INCREASED [None]
  - STATUS EPILEPTICUS [None]
